FAERS Safety Report 5670220-7 (Version None)
Quarter: 2008Q1

REPORT INFORMATION
  Report Type: 
  Country: None (occurrence: None)
  Receive Date: 20080314
  Receipt Date: 20080314
  Transmission Date: 20080703
  Serious: No
  Sender: FDA-Public Use
  Company Number: None

PATIENT
  Age: 18 Year
  Sex: Female
  Weight: 48.5 kg

DRUGS (2)
  1. HYDRALAZINE HCL [Suspect]
     Indication: SYSTEMIC LUPUS ERYTHEMATOSUS
  2. METHYLPREDNISOLONE SODIUM SUCCINATE [Suspect]

REACTIONS (1)
  - INTERCEPTED MEDICATION ERROR [None]
